FAERS Safety Report 5226952-8 (Version None)
Quarter: 2007Q1

REPORT INFORMATION
  Report Type: 
  Country: None (occurrence: None)
  Receive Date: 20070201
  Receipt Date: 20070201
  Transmission Date: 20070707
  Serious: Yes (Hospitalization)
  Sender: FDA-Public Use
  Company Number: None

PATIENT
  Age: 27 Year
  Sex: Female
  Weight: 68.9467 kg

DRUGS (1)
  1. TYGACIL [Suspect]
     Indication: CATHETER SITE INFECTION
     Dosage: 50MG IVPB Q 12 H
     Route: 040
     Dates: start: 20070109, end: 20070117

REACTIONS (1)
  - PANCREATITIS ACUTE [None]
